FAERS Safety Report 8968988 (Version 1)
Quarter: 2012Q4

REPORT INFORMATION
  Report Type: 
  Country: US (occurrence: US)
  Receive Date: 20121218
  Receipt Date: 20121218
  Transmission Date: 20130627
  Serious: No
  Sender: FDA-Public Use
  Company Number: US-009507513-1212USA006154

PATIENT
  Sex: Female

DRUGS (2)
  1. PEG-INTRON [Suspect]
     Indication: HEPATITIS C
     Dosage: UNK, redipen
     Dates: start: 20120921
  2. RIBAVIRIN [Suspect]
     Indication: HEPATITIS C
     Dosage: UNK
     Route: 048
     Dates: start: 20120921

REACTIONS (5)
  - Alopecia [Unknown]
  - Injection site reaction [Unknown]
  - Pruritus [Unknown]
  - Depression [Unknown]
  - Malaise [Unknown]
